FAERS Safety Report 12538379 (Version 1)
Quarter: 2016Q3

REPORT INFORMATION
  Report Type: Spontaneous
  Country: FR (occurrence: FR)
  Receive Date: 20160707
  Receipt Date: 20160707
  Transmission Date: 20161109
  Serious: Yes (Hospitalization, Other)
  Sender: FDA-Public Use
  Company Number: FR-ASTRAZENECA-2016SE72251

PATIENT
  Age: 27077 Day
  Sex: Male
  Weight: 94 kg

DRUGS (17)
  1. SERETIDE [Concomitant]
     Active Substance: FLUTICASONE PROPIONATE\SALMETEROL XINAFOATE
     Indication: CHRONIC OBSTRUCTIVE PULMONARY DISEASE
     Dosage: 500 MCG/50 MCG
  2. IMETH [Concomitant]
     Active Substance: METHOTREXATE SODIUM
     Indication: RHEUMATOID ARTHRITIS
  3. TRAMADOL. [Concomitant]
     Active Substance: TRAMADOL
     Dosage: 400 MG SR PER DAY
  4. INEXIUM [Concomitant]
     Active Substance: ESOMEPRAZOLE
  5. HYDROCORTISONE. [Concomitant]
     Active Substance: HYDROCORTISONE
  6. VANCOMYCINE [Suspect]
     Active Substance: VANCOMYCIN
     Route: 042
     Dates: start: 20160128, end: 20160222
  7. VENTOLINE [Concomitant]
     Active Substance: ALBUTEROL
     Dosage: AS REQUIRED
  8. OXYCONTIN [Concomitant]
     Active Substance: OXYCODONE HYDROCHLORIDE
     Dosage: 20 MG SR
  9. MERONEM [Suspect]
     Active Substance: MEROPENEM
     Route: 042
     Dates: start: 20160614, end: 20160617
  10. SPIRIVA [Concomitant]
     Active Substance: TIOTROPIUM BROMIDE MONOHYDRATE
     Indication: CHRONIC OBSTRUCTIVE PULMONARY DISEASE
  11. CORTANCYL [Concomitant]
     Active Substance: PREDNISONE
     Indication: RHEUMATOID ARTHRITIS
     Dosage: 10 MG ON TUESDAY
  12. AMLOR [Concomitant]
     Active Substance: AMLODIPINE BESYLATE
     Indication: HYPERTENSION
  13. CACIT [Concomitant]
     Active Substance: CALCIUM\VITAMIN D
  14. MERONEM [Suspect]
     Active Substance: MEROPENEM
     Route: 042
     Dates: start: 20160204, end: 20160222
  15. SPECIAFOLDINE [Concomitant]
     Active Substance: FOLIC ACID
     Dosage: 10 MG ON SATURDAY
  16. IMOVANE [Concomitant]
     Active Substance: ZOPICLONE
  17. BRICANYL [Concomitant]
     Active Substance: TERBUTALINE SULFATE
     Indication: CHRONIC OBSTRUCTIVE PULMONARY DISEASE

REACTIONS (7)
  - Spinal compression fracture [Unknown]
  - Medical device site necrosis [Unknown]
  - Sepsis [Unknown]
  - Inflammation [Unknown]
  - Rash maculo-papular [Recovering/Resolving]
  - Intervertebral discitis [Unknown]
  - Urinary tract infection [Unknown]

NARRATIVE: CASE EVENT DATE: 20160219
